FAERS Safety Report 13663970 (Version 1)
Quarter: 2017Q2

REPORT INFORMATION
  Report Type: Spontaneous
  Country: US (occurrence: US)
  Receive Date: 20170618
  Receipt Date: 20170618
  Transmission Date: 20170830
  Serious: Yes (Disabling)
  Sender: FDA-Public Use
  Company Number: None

PATIENT
  Age: 66 Year
  Sex: Female
  Weight: 53.1 kg

DRUGS (2)
  1. LISINOPRIL. [Concomitant]
     Active Substance: LISINOPRIL
  2. IMIQUIMOD. [Suspect]
     Active Substance: IMIQUIMOD
     Indication: ACTINIC KERATOSIS
     Dosage: ?          QUANTITY:2 A DROP OF CREAM;OTHER FREQUENCY:2X /WEEK;?
     Route: 062

REACTIONS (4)
  - Fatigue [None]
  - Pain [None]
  - Migraine [None]
  - Neck pain [None]

NARRATIVE: CASE EVENT DATE: 20170609
